FAERS Safety Report 7596976-4 (Version None)
Quarter: 2011Q3

REPORT INFORMATION
  Report Type: 
  Country: None (occurrence: None)
  Receive Date: 20110708
  Receipt Date: 20110704
  Transmission Date: 20111222
  Serious: Yes (Other)
  Sender: FDA-Public Use
  Company Number: FR-SANOFI-AVENTIS-2011SA042126

PATIENT
  Age: 71 Year
  Sex: Male

DRUGS (11)
  1. ASPIRIN [Concomitant]
  2. PROZAC [Concomitant]
  3. COLIMYCINE [Concomitant]
     Indication: PYELONEPHRITIS
     Dates: start: 20110429
  4. ATORVASTATIN CALCIUM [Concomitant]
  5. NICARDIPINE HCL [Concomitant]
  6. LOVENOX [Suspect]
     Route: 058
     Dates: start: 20110429
  7. ESOMEPRAZOLE MAGNESIUM [Concomitant]
  8. ALFUZOSIN HCL [Concomitant]
  9. TRAMADOL HCL [Concomitant]
  10. UNACIM [Suspect]
     Indication: PYELONEPHRITIS
     Route: 042
     Dates: start: 20110429, end: 20110509
  11. FERROUS SULFATE TAB [Concomitant]

REACTIONS (1)
  - EOSINOPHILIA [None]
